FAERS Safety Report 18883144 (Version 1)
Quarter: 2021Q1

REPORT INFORMATION
  Report Type: Report from Study
  Country: GB (occurrence: GB)
  Receive Date: 20210212
  Receipt Date: 20210212
  Transmission Date: 20210420
  Serious: Yes (Other)
  Sender: FDA-Public Use
  Company Number: GB-ACCORD-216207

PATIENT
  Age: 44 Year
  Sex: Female

DRUGS (12)
  1. TRASTUZUMAB. [Suspect]
     Active Substance: TRASTUZUMAB
     Indication: HER2 POSITIVE BREAST CANCER
     Route: 058
     Dates: start: 20150922
  2. ANASTROZOLE. [Suspect]
     Active Substance: ANASTROZOLE
     Indication: HER2 POSITIVE BREAST CANCER
     Route: 048
     Dates: start: 20160516, end: 20160607
  3. GOSERELIN/GOSERELIN ACETATE [Concomitant]
     Active Substance: GOSERELIN
     Route: 058
     Dates: start: 20160307
  4. DOCETAXEL. [Suspect]
     Active Substance: DOCETAXEL
     Indication: HER2 POSITIVE BREAST CANCER
     Route: 042
     Dates: start: 20150923, end: 20151126
  5. EXEMESTANE. [Suspect]
     Active Substance: EXEMESTANE
     Indication: HER2 POSITIVE BREAST CANCER
     Route: 048
     Dates: start: 202003
  6. LETROZOLE. [Suspect]
     Active Substance: LETROZOLE
     Indication: HER2 POSITIVE BREAST CANCER
     Route: 048
     Dates: start: 20160725, end: 20200203
  7. DENOSUMAB [Concomitant]
     Active Substance: DENOSUMAB
     Route: 058
     Dates: start: 20150922
  8. LETROZOLE. [Suspect]
     Active Substance: LETROZOLE
     Indication: HER2 POSITIVE BREAST CANCER
     Route: 048
     Dates: start: 20160404, end: 20160509
  9. DOCETAXEL. [Suspect]
     Active Substance: DOCETAXEL
     Indication: HER2 POSITIVE BREAST CANCER
     Route: 042
     Dates: start: 20151217, end: 20151218
  10. EXEMESTANE. [Suspect]
     Active Substance: EXEMESTANE
     Indication: HER2 POSITIVE BREAST CANCER
     Route: 048
     Dates: start: 20160622, end: 20160718
  11. PERTUZUMAB. [Suspect]
     Active Substance: PERTUZUMAB
     Indication: HER2 POSITIVE BREAST CANCER
     Route: 042
     Dates: start: 20150922
  12. DOCETAXEL. [Suspect]
     Active Substance: DOCETAXEL
     Indication: HER2 POSITIVE BREAST CANCER
     Route: 042
     Dates: start: 20150922, end: 20160218

REACTIONS (12)
  - Headache [Recovered/Resolved]
  - Peripheral swelling [Recovered/Resolved]
  - Insomnia [Recovered/Resolved]
  - Rash [Recovered/Resolved]
  - Oral herpes [Recovered/Resolved]
  - Musculoskeletal chest pain [Recovered/Resolved]
  - Haemorrhoids [Recovered/Resolved]
  - Tendonitis [Recovered/Resolved]
  - Neuropathy peripheral [Recovered/Resolved]
  - Arthralgia [Not Recovered/Not Resolved]
  - Eczema [Recovering/Resolving]
  - Mouth ulceration [Recovered/Resolved]

NARRATIVE: CASE EVENT DATE: 20151026
